APPROVED DRUG PRODUCT: ESTRING
Active Ingredient: ESTRADIOL
Strength: 0.0075MG/24HR
Dosage Form/Route: INSERT, EXTENDED RELEASE;VAGINAL
Application: N020472 | Product #001
Applicant: PFIZER INC
Approved: Apr 26, 1996 | RLD: Yes | RS: Yes | Type: RX